FAERS Safety Report 5886690-5 (Version None)
Quarter: 2008Q3

REPORT INFORMATION
  Report Type: 
  Country: None (occurrence: None)
  Receive Date: 20080917
  Receipt Date: 20080910
  Transmission Date: 20090109
  Serious: Yes (Hospitalization, Disabling)
  Sender: FDA-Public Use
  Company Number: PHHY2008FR15044

PATIENT
  Age: 81 Year
  Sex: Female

DRUGS (3)
  1. ZOMETA [Suspect]
     Indication: BONE PAIN
     Dosage: 4 MG, QMO
     Dates: start: 20050901, end: 20070601
  2. FLECAINE [Concomitant]
     Dosage: 100 MG
  3. ASPIRIN [Concomitant]

REACTIONS (6)
  - BONE DEBRIDEMENT [None]
  - OSTEOLYSIS [None]
  - OSTEONECROSIS [None]
  - SINUSITIS [None]
  - SURGERY [None]
  - TOOTH EXTRACTION [None]
